FAERS Safety Report 7810705-8 (Version None)
Quarter: 2011Q4

REPORT INFORMATION
  Report Type: 
  Country: None (occurrence: None)
  Receive Date: 20111013
  Receipt Date: 20111012
  Transmission Date: 20120403
  Serious: Yes (Hospitalization)
  Sender: FDA-Public Use
  Company Number: PL-BRISTOL-MYERS SQUIBB COMPANY-15383391

PATIENT
  Age: 74 Year
  Sex: Female

DRUGS (4)
  1. NOVOMIX [Suspect]
     Indication: TYPE 2 DIABETES MELLITUS
     Dosage: INSULIN NOVOMIX UNK-10NOV10(18IU),11NOV10-3DEC10(14IU),4DEC2010-ONG(16IU)
  2. GLUCOPHAGE [Suspect]
     Indication: TYPE 2 DIABETES MELLITUS
     Dates: end: 20110831
  3. BLINDED: SAXAGLIPTIN [Suspect]
     Indication: TYPE 2 DIABETES MELLITUS
     Dosage: DRUG INTERRUPTED ON : 25-OCT-2010,RESUME ON 11NOV2010
     Dates: start: 20100910
  4. PLACEBO [Suspect]
     Indication: TYPE 2 DIABETES MELLITUS
     Dosage: INTERRUPTED ON 25-OCT-2010.
     Dates: start: 20100910

REACTIONS (2)
  - HYPOGLYCAEMIA [None]
  - LOSS OF CONSCIOUSNESS [None]
